FAERS Safety Report 20864949 (Version 1)
Quarter: 2022Q2

REPORT INFORMATION
  Report Type: Spontaneous
  Country: US (occurrence: US)
  Receive Date: 20220524
  Receipt Date: 20220524
  Transmission Date: 20220720
  Serious: No
  Sender: FDA-Public Use
  Company Number: US-TEVA-2022-US-2032863

PATIENT

DRUGS (1)
  1. EMTRICITABINE\TENOFOVIR DISOPROXIL [Suspect]
     Active Substance: EMTRICITABINE\TENOFOVIR DISOPROXIL
     Dosage: FORM STRENGTH: EMTRICITABINE200 MG + TEOFOVIR DISOPROXIL FUMARATE 300 MG
     Route: 065

REACTIONS (3)
  - Hypokinesia [Unknown]
  - Asthenia [Unknown]
  - Arthralgia [Unknown]
